FAERS Safety Report 14324347 (Version 3)
Quarter: 2018Q1

REPORT INFORMATION
  Report Type: Report from Study
  Country: CA (occurrence: CA)
  Receive Date: 20171226
  Receipt Date: 20180125
  Transmission Date: 20180509
  Serious: Yes (Death, Hospitalization)
  Sender: FDA-Public Use
  Company Number: CA-JNJFOC-20171227740

PATIENT
  Age: 71 Year
  Sex: Female
  Weight: 78.1 kg

DRUGS (1)
  1. REMICADE [Suspect]
     Active Substance: INFLIXIMAB
     Indication: CROHN^S DISEASE
     Dosage: STRENGTH = 100 MG
     Route: 042
     Dates: start: 20150629

REACTIONS (2)
  - Pneumonia [Recovered/Resolved]
  - Lung cancer metastatic [Fatal]

NARRATIVE: CASE EVENT DATE: 20171122
